FAERS Safety Report 8422823-4 (Version None)
Quarter: 2012Q2

REPORT INFORMATION
  Report Type: 
  Country: None (occurrence: None)
  Receive Date: 20120529
  Receipt Date: 20120516
  Transmission Date: 20120825
  Serious: Yes (Hospitalization)
  Sender: FDA-Public Use
  Company Number: 2012032349

PATIENT
  Age: 12 Month
  Sex: Male

DRUGS (3)
  1. PRIVIGEN [Suspect]
     Indication: THROMBOCYTOPENIA
     Dosage: 170 MLT / 100MG/ML, INTRAVENOUS (NOT OTHERWISE SPECIFIED)
     Route: 042
     Dates: start: 20120409, end: 20120409
  2. ALVEDON (PARAETAMOL) [Concomitant]
  3. CYKLORAPRON (TRANEXAMIC ACID) [Concomitant]

REACTIONS (4)
  - THROMBOCYTOPENIA [None]
  - OFF LABEL USE [None]
  - PYREXIA [None]
  - NEPHROTIC SYNDROME [None]
